FAERS Safety Report 25332116 (Version 1)
Quarter: 2025Q2

REPORT INFORMATION
  Report Type: Spontaneous
  Country: FR (occurrence: FR)
  Receive Date: 20250519
  Receipt Date: 20250519
  Transmission Date: 20250717
  Serious: Yes (Death)
  Sender: ROCHE
  Company Number: FR-ROCHE-10000286098

PATIENT
  Age: 48 Year

DRUGS (1)
  1. RITUXIMAB [Suspect]
     Active Substance: RITUXIMAB
     Indication: Thromboangiitis obliterans
     Route: 065

REACTIONS (2)
  - Off label use [Unknown]
  - Sepsis [Fatal]
